FAERS Safety Report 8068988-8 (Version None)
Quarter: 2011Q4

REPORT INFORMATION
  Report Type: 
  Country: None (occurrence: None)
  Receive Date: 20111221
  Receipt Date: 20101202
  Transmission Date: 20120403
  Serious: Yes (Hospitalization)
  Sender: FDA-Public Use
  Company Number: PHHY2010US77435

PATIENT
  Age: 65 Year
  Sex: Female
  Weight: 172 kg

DRUGS (2)
  1. CYCLOSPORINE [Concomitant]
  2. EXJADE [Suspect]
     Indication: SERUM FERRITIN INCREASED
     Dosage: 750 MG, DAILY, ORAL
     Route: 048
     Dates: start: 20101022, end: 20101113

REACTIONS (7)
  - RASH MACULO-PAPULAR [None]
  - FATIGUE [None]
  - THROMBOCYTOPENIA [None]
  - PRURITUS [None]
  - CONTUSION [None]
  - RASH GENERALISED [None]
  - RED BLOOD CELL COUNT DECREASED [None]
